FAERS Safety Report 5877625-X (Version None)
Quarter: 2008Q3

REPORT INFORMATION
  Report Type: 
  Country: None (occurrence: None)
  Receive Date: 20080911
  Receipt Date: 20080901
  Transmission Date: 20090109
  Serious: Yes (Hospitalization, Other)
  Sender: FDA-Public Use
  Company Number: FR-WYE-G01573108

PATIENT
  Sex: Female

DRUGS (3)
  1. EFFEXOR [Suspect]
     Dosage: OVERDOSE AMOUNT WAS 30 CAPSULES (DOSAGE STRENGTH UNKNOWN)
     Route: 048
     Dates: start: 20080521, end: 20080521
  2. EFFEXOR [Suspect]
     Dosage: OVERDOSE AMOUNT WAS 2250 MG (30 CAPSULES OF 75 MG)
     Route: 048
     Dates: start: 20080819, end: 20080819
  3. PRAZEPAM [Concomitant]
     Indication: ANXIETY
     Dosage: UNKNOWN

REACTIONS (9)
  - ANXIETY [None]
  - CONDITION AGGRAVATED [None]
  - DRUG WITHDRAWAL SYNDROME [None]
  - DYSSTASIA [None]
  - HYPERSOMNIA [None]
  - INTENTIONAL OVERDOSE [None]
  - MUSCULAR WEAKNESS [None]
  - SUICIDAL IDEATION [None]
  - SUICIDE ATTEMPT [None]
